FAERS Safety Report 7971643-3 (Version None)
Quarter: 2011Q4

REPORT INFORMATION
  Report Type: 
  Country: None (occurrence: None)
  Receive Date: 20111212
  Receipt Date: 20101213
  Transmission Date: 20120403
  Serious: No
  Sender: FDA-Public Use
  Company Number: US-B.I. PHARMACEUTICALS,INC./RIDGEFIELD-2010-BP-10134BP

PATIENT
  Age: 48 Year
  Weight: 81.6 kg

DRUGS (1)
  1. SPIRIVA [Suspect]

REACTIONS (3)
  - MUCOUS MEMBRANE DISORDER [None]
  - ASTHMA [None]
  - DYSPNOEA [None]
